FAERS Safety Report 26137964 (Version 4)
Quarter: 2025Q4

REPORT INFORMATION
  Report Type: Report from Study
  Country: EG (occurrence: EG)
  Receive Date: 20251210
  Receipt Date: 20251230
  Transmission Date: 20260117
  Serious: Yes (Other)
  Sender: ABBVIE
  Company Number: EG-ABBVIE-6573184

PATIENT
  Age: 43 Year
  Sex: Female

DRUGS (3)
  1. HUMIRA [Suspect]
     Active Substance: ADALIMUMAB
     Indication: Uveitis
     Dosage: HUMIRA 40 MG
     Route: 058
     Dates: start: 2024, end: 202409
  2. HUMIRA [Suspect]
     Active Substance: ADALIMUMAB
     Indication: Rheumatoid arthritis
     Dosage: HUMIRA 40 MG,
     Route: 058
     Dates: start: 20251201
  3. RITUXIMAB [Suspect]
     Active Substance: RITUXIMAB
     Indication: Product used for unknown indication
     Route: 065

REACTIONS (14)
  - Corneal perforation [Recovering/Resolving]
  - Drug ineffective [Recovered/Resolved]
  - Eye disorder [Recovering/Resolving]
  - Herpes ophthalmic [Recovering/Resolving]
  - Eye ulcer [Recovering/Resolving]
  - Hypotension [Recovering/Resolving]
  - Pyrexia [Not Recovered/Not Resolved]
  - Sleep disorder [Recovering/Resolving]
  - Therapy cessation [Recovered/Resolved]
  - Eye irritation [Recovering/Resolving]
  - Eye discharge [Recovering/Resolving]
  - Vision blurred [Recovering/Resolving]
  - Nasopharyngitis [Not Recovered/Not Resolved]
  - Immunodeficiency [Unknown]

NARRATIVE: CASE EVENT DATE: 20240101
